FAERS Safety Report 8304244-8 (Version None)
Quarter: 2012Q2

REPORT INFORMATION
  Report Type: 
  Country: None (occurrence: None)
  Receive Date: 20120423
  Receipt Date: 20120412
  Transmission Date: 20120825
  Serious: Yes (Other)
  Sender: FDA-Public Use
  Company Number: PHHY2012US033325

PATIENT
  Age: 56 Year
  Sex: Female

DRUGS (2)
  1. METYRAPONE [Suspect]
     Dosage: UNK
  2. DEXAMETHASONE [Concomitant]
     Dosage: 250 MG, QD
     Dates: start: 20030101

REACTIONS (1)
  - ADRENAL ATROPHY [None]
